FAERS Safety Report 23469420 (Version 2)
Quarter: 2024Q1

REPORT INFORMATION
  Report Type: Spontaneous
  Country: US (occurrence: US)
  Receive Date: 20240202
  Receipt Date: 20240306
  Transmission Date: 20240409
  Serious: Yes (Other)
  Sender: FDA-Public Use
  Company Number: US-PFIZER INC-202400027572

PATIENT
  Age: 54 Year
  Sex: Female

DRUGS (2)
  1. PREMPRO [Suspect]
     Active Substance: ESTROGENS, CONJUGATED\MEDROXYPROGESTERONE ACETATE
     Dosage: 1.5 MG/0.3MG (ONE TABLET)
  2. PREMPRO [Suspect]
     Active Substance: ESTROGENS, CONJUGATED\MEDROXYPROGESTERONE ACETATE
     Dosage: 0.5 DF, DAILY

REACTIONS (2)
  - Haemorrhage [Unknown]
  - Product prescribing error [Unknown]
